FAERS Safety Report 25736610 (Version 1)
Quarter: 2025Q3

REPORT INFORMATION
  Report Type: Report from Study
  Country: IL (occurrence: IL)
  Receive Date: 20250828
  Receipt Date: 20250828
  Transmission Date: 20251020
  Serious: Yes (Other)
  Sender: EMD SERONO INC
  Company Number: IL-Merck Healthcare KGaA-2025043260

PATIENT
  Sex: Male

DRUGS (1)
  1. REBIF [Suspect]
     Active Substance: INTERFERON BETA-1A
     Indication: Multiple sclerosis

REACTIONS (3)
  - Foetal heart rate deceleration abnormality [Recovering/Resolving]
  - Premature baby [Recovering/Resolving]
  - Foetal exposure during pregnancy [Recovering/Resolving]

NARRATIVE: CASE EVENT DATE: 20250717
